FAERS Safety Report 4811540-5 (Version None)
Quarter: 2005Q4

REPORT INFORMATION
  Report Type: 
  Country: None (occurrence: None)
  Receive Date: 20051025
  Receipt Date: 20051011
  Transmission Date: 20060501
  Serious: Yes (Life-Threatening, Hospitalization)
  Sender: FDA-Public Use
  Company Number: THYR-10266

PATIENT
  Age: 58 Year
  Sex: Female
  Weight: 72 kg

DRUGS (7)
  1. THYROGEN [Suspect]
     Indication: DIAGNOSTIC PROCEDURE
     Dosage: 0.9 MG ONCE IM
     Route: 030
     Dates: start: 20050912, end: 20050913
  2. LEVOTHYROX [Concomitant]
  3. AVLOCARDYL [Concomitant]
  4. AERIUS [Concomitant]
  5. PROZAC [Concomitant]
  6. IMOVANE [Concomitant]
  7. SPASMINE [Concomitant]

REACTIONS (4)
  - AMNESIA [None]
  - CONFUSIONAL STATE [None]
  - HEADACHE [None]
  - LOSS OF CONSCIOUSNESS [None]
